FAERS Safety Report 20037909 (Version 1)
Quarter: 2021Q4

REPORT INFORMATION
  Report Type: Spontaneous
  Country: CN (occurrence: None)
  Receive Date: 20211105
  Receipt Date: 20211105
  Transmission Date: 20220303
  Serious: Yes (Hospitalization, Other)
  Sender: FDA-Public Use
  Company Number: 2021A792210

PATIENT
  Age: 17638 Day
  Sex: Male
  Weight: 87.5 kg

DRUGS (4)
  1. NEXIUM [Suspect]
     Active Substance: ESOMEPRAZOLE MAGNESIUM
     Indication: Gastric pH decreased
     Route: 048
     Dates: start: 20211023, end: 20211023
  2. OXYGEN [Concomitant]
     Active Substance: OXYGEN
     Route: 055
  3. DEXAMETHASONE SODIUM PHOSPHATE [Concomitant]
     Active Substance: DEXAMETHASONE SODIUM PHOSPHATE
     Dosage: 5.0MG UNKNOWN
     Route: 030
  4. LORATADINE [Concomitant]
     Active Substance: LORATADINE
     Dosage: 10.0MG UNKNOWN
     Route: 048

REACTIONS (7)
  - Swelling [Recovered/Resolved]
  - Dyspnoea [Recovered/Resolved]
  - Erythema of eyelid [Recovered/Resolved]
  - Tachypnoea [Recovered/Resolved]
  - Rash [Recovered/Resolved]
  - Pruritus [Recovered/Resolved]
  - Erythema [Recovered/Resolved]

NARRATIVE: CASE EVENT DATE: 20211023
